FAERS Safety Report 7889515-1 (Version None)
Quarter: 2011Q4

REPORT INFORMATION
  Report Type: 
  Country: None (occurrence: None)
  Receive Date: 20111103
  Receipt Date: 20111028
  Transmission Date: 20120403
  Serious: Yes (Other)
  Sender: FDA-Public Use
  Company Number: US-PFIZER INC-2011245514

PATIENT
  Sex: Female
  Weight: 81.633 kg

DRUGS (13)
  1. LIPITOR [Suspect]
     Indication: BLOOD CHOLESTEROL INCREASED
     Dosage: 80 MG, 1X/DAY
     Route: 048
     Dates: end: 20110601
  2. NOVOLOG [Concomitant]
     Dosage: UNK
  3. DIOVAN [Concomitant]
     Dosage: UNK
  4. LANTUS [Concomitant]
     Dosage: UNK
  5. NORVASC [Concomitant]
     Dosage: UNK
  6. PLAVIX [Concomitant]
     Dosage: UNK
  7. ACETYLSALICYLIC ACID [Concomitant]
     Dosage: UNK
  8. COREG [Concomitant]
     Dosage: UNK
  9. CATAPRES [Concomitant]
     Dosage: UNK
  10. ZOLOFT [Concomitant]
     Dosage: UNK
  11. LIPITOR [Suspect]
     Indication: BLOOD TRIGLYCERIDES INCREASED
  12. GLUCOPHAGE [Concomitant]
     Dosage: UNK
  13. LOVAZA [Concomitant]
     Dosage: UNK

REACTIONS (11)
  - MYALGIA [None]
  - PAIN IN EXTREMITY [None]
  - DYSSTASIA [None]
  - PAIN [None]
  - FALL [None]
  - SENSATION OF HEAVINESS [None]
  - ASTHENIA [None]
  - INSOMNIA [None]
  - MUSCULAR WEAKNESS [None]
  - ABASIA [None]
  - MYOCARDIAL INFARCTION [None]
